FAERS Safety Report 18847116 (Version 1)
Quarter: 2021Q1

REPORT INFORMATION
  Report Type: Report from Study
  Country: US (occurrence: US)
  Receive Date: 20210203
  Receipt Date: 20210203
  Transmission Date: 20210419
  Serious: No
  Sender: FDA-Public Use
  Company Number: US-EXELIXIS-CABO-20032449

PATIENT
  Age: 65 Year
  Sex: Female

DRUGS (1)
  1. CABOMETYX [Suspect]
     Active Substance: CABOZANTINIB S-MALATE
     Indication: RENAL CELL CARCINOMA
     Dosage: 60 MG, QD
     Dates: start: 20200807, end: 20200921

REACTIONS (9)
  - Oral pain [Recovering/Resolving]
  - Limb discomfort [Unknown]
  - Oropharyngeal pain [Recovering/Resolving]
  - Oral candidiasis [Recovered/Resolved]
  - Constipation [Not Recovered/Not Resolved]
  - Pain in jaw [Recovering/Resolving]
  - Dysphonia [Not Recovered/Not Resolved]
  - Weight decreased [Not Recovered/Not Resolved]
  - Decreased appetite [Recovering/Resolving]

NARRATIVE: CASE EVENT DATE: 202008
